FAERS Safety Report 9736232 (Version 1)
Quarter: 2013Q4

REPORT INFORMATION
  Report Type: Spontaneous
  Country: GB (occurrence: GB)
  Receive Date: 20131206
  Receipt Date: 20131206
  Transmission Date: 20140711
  Serious: Yes (Hospitalization, Other)
  Sender: FDA-Public Use
  Company Number: GB-UCBSA-104539

PATIENT
  Age: 82 Year
  Sex: Male

DRUGS (11)
  1. ISOSORBIDE MONONITRATE [Suspect]
     Dosage: UNKNOWN DOSE
     Dates: end: 20130116
  2. METFORMIN HYDROCHLORIDE [Suspect]
     Indication: TYPE 2 DIABETES MELLITUS
     Dosage: 2000 MG
  3. NICORANDIL [Suspect]
     Dosage: UNKNOWN DOSE
     Dates: end: 20130116
  4. PLACEBO [Suspect]
     Indication: TYPE 2 DIABETES MELLITUS
     Dosage: UNKNOWN DOSE
     Route: 048
     Dates: start: 20100726, end: 20121229
  5. ANGEZE/MONOMAX SR [Concomitant]
     Dosage: 60 MG
     Dates: start: 20120725
  6. ASPIRIN [Concomitant]
     Dosage: UNKNOWN DOSE
     Dates: end: 20121229
  7. CITALOPRAM [Concomitant]
     Dosage: UNKNOWN DOSE
     Dates: start: 20110428
  8. DIPROBASE [Concomitant]
     Dosage: UNKNOWN DOSE
     Dates: start: 20101203
  9. FOLIC ACID [Concomitant]
     Dosage: 5 MG
     Dates: start: 20120813
  10. GLYCERYL TRINITRATE [Concomitant]
     Dosage: UNKNOWN DOSE
  11. HYDROXOCOBALAMIN [Concomitant]
     Dosage: 1 MG
     Dates: start: 20120725

REACTIONS (4)
  - Subdural haematoma [Recovering/Resolving]
  - Vascular dementia [Unknown]
  - Delirium [Recovering/Resolving]
  - Orthostatic hypotension [Unknown]
